FAERS Safety Report 15482370 (Version 1)
Quarter: 2018Q4

REPORT INFORMATION
  Report Type: Spontaneous
  Country: BG (occurrence: BG)
  Receive Date: 20181010
  Receipt Date: 20181010
  Transmission Date: 20190205
  Serious: Yes (Other)
  Sender: FDA-Public Use
  Company Number: BG-PFIZER INC-2018407375

PATIENT
  Sex: Female

DRUGS (1)
  1. SUTENT [Suspect]
     Active Substance: SUNITINIB MALATE
     Indication: GASTROINTESTINAL STROMAL CANCER
     Dosage: 37.5 MG, 1X/DAY

REACTIONS (5)
  - Oedema [Unknown]
  - Constipation [Unknown]
  - Neutropenia [Unknown]
  - Bradycardia [Unknown]
  - Diarrhoea [Unknown]
